FAERS Safety Report 6089022-5 (Version None)
Quarter: 2009Q1

REPORT INFORMATION
  Report Type: 
  Country: None (occurrence: None)
  Receive Date: 20090224
  Receipt Date: 20090216
  Transmission Date: 20090719
  Serious: Yes (Congenital Anomaly)
  Sender: FDA-Public Use
  Company Number: A0756634A

PATIENT
  Sex: Male

DRUGS (3)
  1. PAXIL CR [Suspect]
     Indication: BIPOLAR DISORDER
     Dosage: 25MG TWICE PER DAY
     Dates: start: 20050301, end: 20051101
  2. PAXIL [Suspect]
     Indication: BIPOLAR DISORDER
     Dosage: 25MG TWICE PER DAY
     Dates: start: 20050301, end: 20051101
  3. UNSPECIFIED MEDICATION [Concomitant]

REACTIONS (6)
  - ATRIAL SEPTAL DEFECT [None]
  - CARDIAC DISORDER [None]
  - DRUG EXPOSURE DURING PREGNANCY [None]
  - DYSMORPHISM [None]
  - ORAL DISORDER [None]
  - SPEECH DISORDER DEVELOPMENTAL [None]
